FAERS Safety Report 5086981-4 (Version None)
Quarter: 2006Q3

REPORT INFORMATION
  Report Type: 
  Country: None (occurrence: None)
  Receive Date: 20060821
  Receipt Date: 20060804
  Transmission Date: 20061208
  Serious: Yes (Hospitalization, Other)
  Sender: FDA-Public Use
  Company Number: 2006AL002172

PATIENT
  Age: 73 Year
  Sex: Male

DRUGS (1)
  1. DICLOFENAC SODIUM [Suspect]
     Indication: JOINT STIFFNESS
     Dosage: 50 MG;BID;PO
     Route: 048
     Dates: start: 20030101, end: 20060429

REACTIONS (2)
  - DUODENAL ULCER [None]
  - FAECES DISCOLOURED [None]
